FAERS Safety Report 9456667 (Version 1)
Quarter: 2013Q3

REPORT INFORMATION
  Report Type: Spontaneous
  Country: US (occurrence: US)
  Receive Date: 20130813
  Receipt Date: 20130813
  Transmission Date: 20140515
  Serious: Yes (Disabling, Other)
  Sender: FDA-Public Use
  Company Number: US-PFIZER INC-2013234939

PATIENT
  Age: 55 Year
  Sex: Female
  Weight: 56.69 kg

DRUGS (2)
  1. LYRICA [Suspect]
     Indication: FIBROMYALGIA
     Dosage: 100 MG, 3X/DAY
  2. TREXIMET [Concomitant]
     Indication: MIGRAINE
     Dosage: SUMATRIPTAN 85MG / NAPROXEN SODIUM 500MG, AS NEEDED

REACTIONS (2)
  - Arthropathy [Unknown]
  - Deafness [Unknown]
